FAERS Safety Report 22661490 (Version 1)
Quarter: 2023Q2

REPORT INFORMATION
  Report Type: Spontaneous
  Country: IT (occurrence: IT)
  Receive Date: 20230630
  Receipt Date: 20230630
  Transmission Date: 20230721
  Serious: No
  Sender: FDA-Public Use
  Company Number: IT-JAZZ-2022-IT-037382

PATIENT
  Age: 32 Year

DRUGS (1)
  1. CANNABIDIOL [Suspect]
     Active Substance: CANNABIDIOL
     Indication: Tuberous sclerosis complex

REACTIONS (1)
  - Therapeutic response unexpected [Unknown]
